FAERS Safety Report 6168629-0 (Version None)
Quarter: 2009Q2

REPORT INFORMATION
  Report Type: 
  Country: None (occurrence: None)
  Receive Date: 20090424
  Receipt Date: 20090424
  Transmission Date: 20091009
  Serious: No
  Sender: FDA-Public Use
  Company Number: None

PATIENT
  Sex: Female
  Weight: 47.6277 kg

DRUGS (1)
  1. ACTONEL [Suspect]
     Indication: OSTEOPOROSIS
     Dosage: 35MG WEEKLY PO
     Route: 048
     Dates: start: 20090115, end: 20090401

REACTIONS (3)
  - CHANGE OF BOWEL HABIT [None]
  - DYSPEPSIA [None]
  - MALAISE [None]
